FAERS Safety Report 7177104-6 (Version None)
Quarter: 2010Q4

REPORT INFORMATION
  Report Type: 
  Country: None (occurrence: None)
  Receive Date: 20101220
  Receipt Date: 20101210
  Transmission Date: 20110411
  Serious: Yes (Other)
  Sender: FDA-Public Use
  Company Number: PHHY2010US84132

PATIENT
  Sex: Male

DRUGS (5)
  1. EXTAVIA [Suspect]
     Indication: MULTIPLE SCLEROSIS
     Dosage: 0.25 MG, QOD
     Route: 058
     Dates: start: 20100413
  2. AMLODIPINE [Concomitant]
     Dosage: 5 MG, QD
  3. BACLOFEN [Concomitant]
     Dosage: 20 MG, QD
  4. LORTAB [Concomitant]
     Dosage: 7.5 MG, UNK
  5. VITAMIN D [Concomitant]
     Dosage: 1000 MG, QD

REACTIONS (3)
  - BALANCE DISORDER [None]
  - FALL [None]
  - GAIT DISTURBANCE [None]
